FAERS Safety Report 10363549 (Version 2)
Quarter: 2014Q3

REPORT INFORMATION
  Report Type: Spontaneous
  Country: FR (occurrence: FR)
  Receive Date: 20140805
  Receipt Date: 20140922
  Transmission Date: 20150326
  Serious: Yes (Death, Hospitalization)
  Sender: FDA-Public Use
  Company Number: FR-ASTRAZENECA-2014SE55055

PATIENT
  Age: 13447 Day
  Sex: Female

DRUGS (9)
  1. CRESTOR [Suspect]
     Active Substance: ROSUVASTATIN CALCIUM
     Route: 048
     Dates: start: 20140420, end: 20140611
  2. RENVELA [Concomitant]
     Active Substance: SEVELAMER CARBONATE
  3. ATENOLOL. [Concomitant]
     Active Substance: ATENOLOL
  4. CALCIDIA [Concomitant]
     Active Substance: CALCIUM POLYCARBOPHIL
  5. TRIATEC [Suspect]
     Active Substance: RAMIPRIL
     Indication: HYPERTENSION
     Route: 048
     Dates: start: 20140420, end: 20140611
  6. LASILIX [Suspect]
     Active Substance: FUROSEMIDE
     Route: 065
     Dates: start: 20140420, end: 20140611
  7. UVEDOSE [Concomitant]
     Active Substance: CHOLECALCIFEROL
  8. AMLOR [Concomitant]
     Active Substance: AMLODIPINE BESYLATE
     Dates: end: 20140611
  9. GLYCEROL\PARAFFIN [Concomitant]
     Active Substance: GLYCERIN\PARAFFIN

REACTIONS (3)
  - Pseudomonal sepsis [Fatal]
  - Drug reaction with eosinophilia and systemic symptoms [Recovered/Resolved]
  - Gastrointestinal haemorrhage [Fatal]

NARRATIVE: CASE EVENT DATE: 20140607
